FAERS Safety Report 6267276-X (Version None)
Quarter: 2009Q3

REPORT INFORMATION
  Report Type: 
  Country: None (occurrence: None)
  Receive Date: 20090714
  Receipt Date: 20090701
  Transmission Date: 20100115
  Serious: Yes (Other)
  Sender: FDA-Public Use
  Company Number: US-PFIZER INC-2009236486

PATIENT
  Sex: Male
  Weight: 70.295 kg

DRUGS (7)
  1. CHANTIX [Suspect]
     Dates: start: 20090420, end: 20090702
  2. CHANTIX [Suspect]
     Dosage: FREQUENCY: 2X/DAY, EVERYDAY;
     Route: 048
     Dates: start: 20090420
  3. ADVAIR HFA [Concomitant]
     Route: 048
     Dates: start: 20090401
  4. CRESTOR [Concomitant]
     Route: 048
  5. ASPIRIN [Concomitant]
     Route: 048
  6. MULTI-VITAMINS [Concomitant]
     Route: 048
  7. AVAPRO [Concomitant]

REACTIONS (2)
  - AGITATION [None]
  - HOMICIDAL IDEATION [None]
